FAERS Safety Report 20873036 (Version 2)
Quarter: 2022Q2

REPORT INFORMATION
  Report Type: Spontaneous
  Country: CO (occurrence: CO)
  Receive Date: 20220525
  Receipt Date: 20220527
  Transmission Date: 20220721
  Serious: Yes (Other)
  Sender: FDA-Public Use
  Company Number: CO-PFIZER INC-202200726509

PATIENT
  Sex: Male

DRUGS (1)
  1. SUTENT [Suspect]
     Active Substance: SUNITINIB MALATE
     Indication: Renal cancer
     Dosage: 12.5 MG, UNSPECIFIED FREQUENCY
     Route: 048
     Dates: start: 2021

REACTIONS (3)
  - Blindness [Unknown]
  - Asthenopia [Unknown]
  - Haematoma [Recovering/Resolving]
